FAERS Safety Report 4439526-3 (Version None)
Quarter: 2004Q3

REPORT INFORMATION
  Report Type: 
  Country: None (occurrence: None)
  Receive Date: 20040901
  Receipt Date: 20040901
  Transmission Date: 20050211
  Serious: Yes (Hospitalization)
  Sender: FDA-Public Use
  Company Number: None

PATIENT
  Sex: Male
  Weight: 77.5651 kg

DRUGS (7)
  1. DIGOXIN [Suspect]
     Indication: ATRIAL FIBRILLATION
     Dosage: 0.25 MG PO QD
     Route: 048
  2. ZANTAC [Concomitant]
  3. LASIX [Concomitant]
  4. LOPRESSOR [Concomitant]
  5. ASPIRIN [Concomitant]
  6. ARICEPT [Concomitant]
  7. ZOLOFT [Concomitant]

REACTIONS (3)
  - BRADYCARDIA [None]
  - CARDIAC FAILURE CONGESTIVE [None]
  - THERAPEUTIC AGENT TOXICITY [None]
